FAERS Safety Report 6207994-2 (Version None)
Quarter: 2009Q2

REPORT INFORMATION
  Report Type: 
  Country: None (occurrence: None)
  Receive Date: 20090529
  Receipt Date: 20090303
  Transmission Date: 20091009
  Serious: No
  Sender: FDA-Public Use
  Company Number: A0771331A

PATIENT
  Age: 60 Year
  Sex: Female

DRUGS (4)
  1. VENTOLIN [Suspect]
     Indication: COUGH
     Dosage: 1PUFF SINGLE DOSE
     Route: 055
     Dates: start: 20090302
  2. ALLEGRA [Concomitant]
  3. PHENERGAN W/ CODEINE [Concomitant]
  4. SYMBICORT [Concomitant]

REACTIONS (2)
  - BLOOD PRESSURE DECREASED [None]
  - DIZZINESS [None]
